FAERS Safety Report 10192160 (Version 1)
Quarter: 2014Q2

REPORT INFORMATION
  Report Type: Spontaneous
  Country: CA (occurrence: CA)
  Receive Date: 20140523
  Receipt Date: 20140523
  Transmission Date: 20141212
  Serious: Yes (Hospitalization, Other)
  Sender: FDA-Public Use
  Company Number: CA-WATSON-2014-10942

PATIENT
  Age: 53 Year
  Sex: Female

DRUGS (6)
  1. TRIAMCINOLONE ACETONIDE [Suspect]
     Indication: ARTHRALGIA
     Dosage: 40 MG, SINGLE
     Route: 014
  2. RITONAVIR [Interacting]
     Indication: ANTIRETROVIRAL THERAPY
     Dosage: 100 MG, DAILY
     Route: 065
  3. DARUNAVIR [Concomitant]
     Indication: ANTIRETROVIRAL THERAPY
     Dosage: 800 MG, DAILY
     Route: 065
  4. RALTEGRAVIR [Concomitant]
     Indication: ANTIRETROVIRAL THERAPY
     Dosage: 400 MG, BID
     Route: 065
  5. VALSARTAN [Concomitant]
     Indication: HYPERTENSION
     Dosage: 160 MG, DAILY
     Route: 065
  6. METFORMIN [Concomitant]
     Indication: TYPE 2 DIABETES MELLITUS
     Dosage: 500 MG, BID
     Route: 065

REACTIONS (4)
  - Cushing^s syndrome [Recovered/Resolved with Sequelae]
  - Drug interaction [Unknown]
  - Blood pressure increased [None]
  - Diabetes mellitus inadequate control [None]
